FAERS Safety Report 6312805-0 (Version None)
Quarter: 2009Q3

REPORT INFORMATION
  Report Type: 
  Country: None (occurrence: None)
  Receive Date: 20090814
  Receipt Date: 20090805
  Transmission Date: 20100115
  Serious: Yes (Other)
  Sender: FDA-Public Use
  Company Number: 2009-03197

PATIENT
  Sex: Male

DRUGS (2)
  1. VELCADE [Suspect]
     Indication: MULTIPLE MYELOMA
  2. DOXIL [Suspect]
     Indication: MULTIPLE MYELOMA

REACTIONS (5)
  - BURNING SENSATION [None]
  - EYE SWELLING [None]
  - EYELID DISORDER [None]
  - NODULE [None]
  - SKIN CHAPPED [None]
